FAERS Safety Report 5838694-6 (Version None)
Quarter: 2008Q3

REPORT INFORMATION
  Report Type: 
  Country: None (occurrence: None)
  Receive Date: 20080808
  Receipt Date: 20080731
  Transmission Date: 20090109
  Serious: Yes (Other)
  Sender: FDA-Public Use
  Company Number: B0361342A

PATIENT
  Age: 49 Year
  Sex: Male

DRUGS (9)
  1. SEROXAT [Suspect]
     Indication: POST-TRAUMATIC STRESS DISORDER
     Dosage: 20MG PER DAY
     Route: 065
     Dates: start: 19990211, end: 20030701
  2. PHENYTOIN SODIUM CAP [Concomitant]
     Route: 065
  3. TRAMADOL HCL [Concomitant]
     Route: 065
  4. DIAZEPAM [Concomitant]
     Dates: start: 20030714
  5. CARBAMAZEPINE [Concomitant]
     Dates: start: 19990928
  6. ESCITALOPRAM [Concomitant]
     Dates: start: 20030804
  7. PROPRANOLOL [Concomitant]
     Indication: ANXIETY
  8. COPROXAMOL [Concomitant]
  9. CODYDRAMOL [Concomitant]

REACTIONS (19)
  - ABNORMAL DREAMS [None]
  - ACCIDENTAL OVERDOSE [None]
  - ANGER [None]
  - BRUXISM [None]
  - DEHYDRATION [None]
  - DISSOCIATION [None]
  - DISTURBANCE IN ATTENTION [None]
  - DRUG WITHDRAWAL SYNDROME [None]
  - INTENTIONAL OVERDOSE [None]
  - MELAENA [None]
  - MEMORY IMPAIRMENT [None]
  - MOOD SWINGS [None]
  - NAUSEA [None]
  - PALPITATIONS [None]
  - PANIC ATTACK [None]
  - RECTAL HAEMORRHAGE [None]
  - SUICIDAL IDEATION [None]
  - SUICIDE ATTEMPT [None]
  - TINNITUS [None]
